FAERS Safety Report 12641361 (Version 2)
Quarter: 2016Q3

REPORT INFORMATION
  Report Type: Spontaneous
  Country: US (occurrence: US)
  Receive Date: 20160810
  Receipt Date: 20160829
  Transmission Date: 20161109
  Serious: No
  Sender: FDA-Public Use
  Company Number: US-PFIZER INC-2016369397

PATIENT
  Sex: Female

DRUGS (2)
  1. INDERAL [Suspect]
     Active Substance: PROPRANOLOL HYDROCHLORIDE
     Dosage: UNK
     Route: 065
  2. CEFADROXIL. [Suspect]
     Active Substance: CEFADROXIL
     Dosage: UNK
     Route: 065

REACTIONS (3)
  - Abdominal discomfort [Unknown]
  - Insomnia [Unknown]
  - Drug hypersensitivity [Unknown]
